FAERS Safety Report 15068069 (Version 1)
Quarter: 2018Q2

REPORT INFORMATION
  Report Type: Spontaneous
  Country: FR (occurrence: FR)
  Receive Date: 20180626
  Receipt Date: 20180626
  Transmission Date: 20180711
  Serious: Yes (Life-Threatening, Hospitalization)
  Sender: FDA-Public Use
  Company Number: FR-PFM-2018-07101

PATIENT

DRUGS (5)
  1. LEXOMIL [Suspect]
     Active Substance: BROMAZEPAM
     Indication: SUICIDE ATTEMPT
     Dosage: 180 MG
     Route: 048
     Dates: start: 20180428, end: 20180428
  2. RYTHMOL [Suspect]
     Active Substance: PROPAFENONE HYDROCHLORIDE
     Indication: SUICIDE ATTEMPT
     Dosage: 10 DF
     Route: 048
     Dates: start: 20180428, end: 20180428
  3. STILNOX [Suspect]
     Active Substance: ZOLPIDEM TARTRATE
     Indication: SUICIDE ATTEMPT
     Dosage: 14 DF
     Route: 048
     Dates: start: 20180428, end: 20180428
  4. RYTHMODAN [Suspect]
     Active Substance: DISOPYRAMIDE
     Indication: SUICIDE ATTEMPT
     Dosage: 10 DF
     Route: 048
     Dates: start: 20180428, end: 20180428
  5. PROPRANOLOL [Suspect]
     Active Substance: PROPRANOLOL HYDROCHLORIDE
     Indication: SUICIDE ATTEMPT
     Dosage: 6800 MG
     Route: 048
     Dates: start: 20180428, end: 20180428

REACTIONS (8)
  - Atrioventricular block [Recovered/Resolved]
  - Drug administered to patient of inappropriate age [Unknown]
  - Cardio-respiratory arrest [Recovered/Resolved]
  - Bradycardia [Recovered/Resolved]
  - Electrocardiogram QRS complex prolonged [Recovered/Resolved]
  - Hypotension [Recovered/Resolved]
  - Cardiogenic shock [Recovered/Resolved]
  - Intentional overdose [Unknown]

NARRATIVE: CASE EVENT DATE: 20180428
